FAERS Safety Report 9831443 (Version 1)
Quarter: 2014Q1

REPORT INFORMATION
  Report Type: Report from Study
  Country: CN (occurrence: CN)
  Receive Date: 20140121
  Receipt Date: 20140121
  Transmission Date: 20141002
  Serious: Yes (Other)
  Sender: FDA-Public Use
  Company Number: CN-ROCHE-1335954

PATIENT
  Age: 35 Year
  Sex: Female

DRUGS (5)
  1. HERCEPTIN [Suspect]
     Indication: BREAST CANCER
     Dosage: INITIAL DOSE 8MG/KG AND THEN 6MG/KG
     Route: 065
     Dates: start: 20110816
  2. TAMOXIFEN [Concomitant]
     Route: 048
     Dates: start: 201107
  3. ZOLADEX [Concomitant]
     Route: 058
     Dates: start: 201108
  4. GEMCITABINE [Concomitant]
  5. CISPLATIN [Concomitant]

REACTIONS (2)
  - Metastases to liver [Unknown]
  - Disease progression [Unknown]
